FAERS Safety Report 24414318 (Version 1)
Quarter: 2024Q4

REPORT INFORMATION
  Report Type: Spontaneous
  Country: CN (occurrence: CN)
  Receive Date: 20241009
  Receipt Date: 20241009
  Transmission Date: 20250114
  Serious: Yes (Hospitalization)
  Sender: NOVAST
  Company Number: CN-NOVAST LABORATORIES INC.-2024NOV000305

PATIENT
  Age: 72 Year
  Sex: Male

DRUGS (5)
  1. OXALIPLATIN [Suspect]
     Active Substance: OXALIPLATIN
     Indication: Gastric cancer
     Dosage: 180 MILLIGRAM, DAY 1
     Route: 042
     Dates: start: 202306
  2. OXALIPLATIN [Suspect]
     Active Substance: OXALIPLATIN
     Dosage: 180 MILLIGRAM, DAY 1
     Route: 042
     Dates: start: 202307
  3. INVESTIGATIONAL PRODUCT [Suspect]
     Active Substance: INVESTIGATIONAL PRODUCT
     Indication: Gastric cancer
     Dosage: 60 MILLIGRAM,DAY1 TO DAY14 TWICE A DAY (ONCE EVERY 3 WEEKS)
     Route: 065
     Dates: start: 202306
  4. INVESTIGATIONAL PRODUCT [Suspect]
     Active Substance: INVESTIGATIONAL PRODUCT
     Dosage: 60 MILLIGRAM,DAY 1 TO DAY 14, TWICE A DAY
     Route: 048
     Dates: start: 202307
  5. SINTILIMAB [Suspect]
     Active Substance: SINTILIMAB
     Indication: Gastric cancer
     Dosage: 200 MILLIGRAM, EVERY 3 WEEKS
     Route: 042
     Dates: start: 202307

REACTIONS (2)
  - Myasthenia gravis [Recovered/Resolved]
  - Myocarditis [Recovered/Resolved]
